FAERS Safety Report 7113079-3 (Version None)
Quarter: 2010Q4

REPORT INFORMATION
  Report Type: 
  Country: None (occurrence: None)
  Receive Date: 20101119
  Receipt Date: 20101111
  Transmission Date: 20110411
  Serious: Yes (Hospitalization)
  Sender: FDA-Public Use
  Company Number: US-US-EMD SERONO, INC.-232287J09USA

PATIENT
  Sex: Male

DRUGS (1)
  1. REBIF [Suspect]
     Indication: MULTIPLE SCLEROSIS
     Route: 058
     Dates: start: 20080323

REACTIONS (6)
  - CENTRAL NERVOUS SYSTEM LESION [None]
  - CHILLS [None]
  - CONVULSION [None]
  - FATIGUE [None]
  - FEELING COLD [None]
  - TREMOR [None]
